FAERS Safety Report 7455687-6 (Version None)
Quarter: 2011Q2

REPORT INFORMATION
  Report Type: 
  Country: None (occurrence: None)
  Receive Date: 20110503
  Receipt Date: 20110426
  Transmission Date: 20111010
  Serious: Yes (Other)
  Sender: FDA-Public Use
  Company Number: JP-B.I. PHARMACEUTICALS,INC./RIDGEFIELD-2011-BP-11546YA

PATIENT
  Age: 72 Year
  Sex: Male

DRUGS (8)
  1. GLIMICRON (GLICLAZIDE) [Concomitant]
  2. ASPIRIN [Concomitant]
  3. ZONISAMIDE [Concomitant]
  4. MAGNESIUM OXIDE (MAGNESIUM OXIDE) [Concomitant]
  5. OPALMON (LIMAPROST) [Concomitant]
  6. CRESTOR [Concomitant]
  7. TAMSULOSIN HCL [Suspect]
     Indication: BENIGN PROSTATIC HYPERPLASIA
     Dosage: 0.2 MG
     Route: 048
     Dates: start: 20110418
  8. TOPIRAMATE [Concomitant]

REACTIONS (1)
  - EPILEPSY [None]
